FAERS Safety Report 7031939-9 (Version None)
Quarter: 2010Q4

REPORT INFORMATION
  Report Type: 
  Country: None (occurrence: None)
  Receive Date: 20101007
  Receipt Date: 20100930
  Transmission Date: 20110411
  Serious: Yes (Hospitalization, Disabling, Other)
  Sender: FDA-Public Use
  Company Number: US-ELI_LILLY_AND_COMPANY-US201009000226

PATIENT
  Sex: Male

DRUGS (12)
  1. HUMALOG [Suspect]
     Indication: DIABETES MELLITUS
     Dosage: 20 U, 3/D
  2. HUMALOG [Suspect]
     Dosage: UNK, AS NEEDED
  3. LANTUS [Concomitant]
     Indication: DIABETES MELLITUS
     Dosage: 50 U, EACH MORNING
  4. METFORMIN HCL [Concomitant]
     Indication: DIABETES MELLITUS
     Dosage: 1000 MG, 2/D
  5. PLAVIX [Concomitant]
  6. IMDUR [Concomitant]
     Dosage: 30 MG, EACH MORNING
  7. COREG [Concomitant]
     Dosage: 3.125 UNK, 2/D
  8. SIMVASTATIN [Concomitant]
     Dosage: 80 MG, EACH EVENING
  9. ALTACE [Concomitant]
     Dosage: 2.5 MG, EACH MORNING
  10. ASPIRIN [Concomitant]
     Dosage: 81 MG, 2/D
  11. NITROGLYCERIN [Concomitant]
     Dosage: 0.4 MG, AS NEEDED
  12. PNEUMUNE [Concomitant]
     Dosage: 0.5 ML, UNK
     Route: 030
     Dates: start: 20090527

REACTIONS (6)
  - ARTERIAL OCCLUSIVE DISEASE [None]
  - CARDIAC DISORDER [None]
  - GENERAL PHYSICAL HEALTH DETERIORATION [None]
  - MYOCARDIAL INFARCTION [None]
  - PAIN [None]
  - VASCULAR GRAFT [None]
